FAERS Safety Report 11222549 (Version 1)
Quarter: 2015Q2

REPORT INFORMATION
  Report Type: Spontaneous
  Country: US (occurrence: US)
  Receive Date: 20150626
  Receipt Date: 20150626
  Transmission Date: 20150821
  Serious: No
  Sender: FDA-Public Use
  Company Number: US-BAYER-2015-352912

PATIENT
  Age: 60 Year
  Sex: Female
  Weight: 66 kg

DRUGS (3)
  1. PHILLIPS^ LAXATIVE DIETARY SUPPLEMENT [Suspect]
     Active Substance: MAGNESIUM OXIDE
     Indication: CONSTIPATION
     Dosage: 1 DF, BID
     Route: 048
  2. MILK OF MAGNESIA CHERRY [Suspect]
     Active Substance: MAGNESIUM HYDROXIDE
     Indication: CONSTIPATION
     Dosage: 4-5 TABLESPOON, PRN
     Route: 048
  3. MIRALAX [Suspect]
     Active Substance: POLYETHYLENE GLYCOL 3350
     Indication: CONSTIPATION
     Dosage: 1 DOSE, QD
     Route: 048
     Dates: start: 2013, end: 2013

REACTIONS (9)
  - Abdominal pain lower [Recovered/Resolved]
  - Muscle spasms [Recovered/Resolved]
  - Product use issue [Unknown]
  - Drug ineffective [Unknown]
  - Abdominal distension [Recovered/Resolved]
  - Breast pain [Recovered/Resolved]
  - Flatulence [Recovered/Resolved]
  - Retching [Unknown]
  - Dyspepsia [Unknown]
